FAERS Safety Report 5689749-0 (Version None)
Quarter: 2008Q1

REPORT INFORMATION
  Report Type: 
  Country: None (occurrence: None)
  Receive Date: 20080328
  Receipt Date: 20080317
  Transmission Date: 20080703
  Serious: Yes (Death, Hospitalization)
  Sender: FDA-Public Use
  Company Number: GXKR2008GB02706

PATIENT
  Age: 87 Year
  Sex: Male

DRUGS (18)
  1. CO-AMOXICLAV (NGX)(AMOXICILLIN, CLAVULANATE) UNKNOWN [Suspect]
     Indication: LOWER RESPIRATORY TRACT INFECTION
     Dosage: 1.2 G TID, INTRAVENOUS
     Route: 042
     Dates: start: 20080226, end: 20080229
  2. DOXYCYCLINE [Suspect]
     Indication: LOWER RESPIRATORY TRACT INFECTION
     Dosage: 100 MG, QD, ORAL
     Route: 048
     Dates: start: 20080226, end: 20080228
  3. ATENOLOL [Concomitant]
  4. BACTROBAN (MUPIROCIN) [Concomitant]
  5. CALCICHEW D3 (CALCIUM CARBONATE, COLECALCIFEROL) [Concomitant]
  6. CIPROFLOXACIN [Concomitant]
  7. CITALOPRAM (CITALOPRAM) [Concomitant]
  8. ENOXAPARIN SODIUM [Concomitant]
  9. FINASTERIDE [Concomitant]
  10. FUROSEMIDE [Concomitant]
  11. GLICLAZIDE (GLICLAZIDE) [Concomitant]
  12. HALOPERIDOL [Concomitant]
  13. ISOSORBIDE MONONITRATE [Concomitant]
  14. LACTULOSE [Concomitant]
  15. LORAZEPAM [Concomitant]
  16. NICOTINELL CLASSIC (NICOTINE) [Concomitant]
  17. OXYBUTYNIN CHLORIDE [Concomitant]
  18. ZOPICLONE (ZOPICLONE) [Concomitant]

REACTIONS (3)
  - HEPATITIS ACUTE [None]
  - HEPATOCELLULAR INJURY [None]
  - LOWER RESPIRATORY TRACT INFECTION [None]
